FAERS Safety Report 5491492-8 (Version None)
Quarter: 2007Q4

REPORT INFORMATION
  Report Type: 
  Country: None (occurrence: None)
  Receive Date: 20071022
  Receipt Date: 20071011
  Transmission Date: 20080405
  Serious: Yes (Hospitalization)
  Sender: FDA-Public Use
  Company Number: PHHO2007US15289

PATIENT
  Age: 66 Year
  Sex: Female
  Weight: 107.94 kg

DRUGS (13)
  1. LETROZOLE [Suspect]
     Indication: BREAST CANCER METASTATIC
     Dosage: 2.5 MG, QD
     Route: 048
     Dates: start: 20070718
  2. LUNESTA [Concomitant]
  3. ADVIL LIQUI-GELS [Concomitant]
  4. TARCEVA [Suspect]
     Indication: BREAST CANCER METASTATIC
     Dosage: 150 MG, QD
     Route: 048
     Dates: start: 20070718, end: 20070910
  5. LEVOTHYROXINE SODIUM [Concomitant]
  6. SYNTHROID [Concomitant]
  7. CARDURA [Concomitant]
  8. IMODIUM [Concomitant]
  9. ACCUPRIL [Concomitant]
  10. TRIAMTERENE AND HYDROCHLOROTHIAZIDE [Concomitant]
  11. ASPIRIN [Concomitant]
  12. CALCIUM [Concomitant]
  13. ZOMETA [Concomitant]

REACTIONS (16)
  - BLOOD CREATININE ABNORMAL [None]
  - BLOOD DISORDER [None]
  - BLOOD UREA ABNORMAL [None]
  - DEHYDRATION [None]
  - DIARRHOEA [None]
  - DYSPHAGIA [None]
  - EPISTAXIS [None]
  - EXERCISE TOLERANCE DECREASED [None]
  - MYALGIA [None]
  - ORAL INTAKE REDUCED [None]
  - RASH PRURITIC [None]
  - RENAL FAILURE ACUTE [None]
  - STOMATITIS [None]
  - URINARY TRACT INFECTION [None]
  - VISION BLURRED [None]
  - WEIGHT DECREASED [None]
